FAERS Safety Report 7352021-7 (Version None)
Quarter: 2011Q1

REPORT INFORMATION
  Report Type: 
  Country: None (occurrence: None)
  Receive Date: 20110315
  Receipt Date: 20110301
  Transmission Date: 20110831
  Serious: Yes (Other)
  Sender: FDA-Public Use
  Company Number: NL-MYLANLABS-2011S1004059

PATIENT
  Age: 28 Year
  Sex: Male
  Weight: 85 kg

DRUGS (1)
  1. FLUOXETINE [Suspect]
     Indication: DEPRESSION
     Dosage: 1 X DAAGS
     Route: 048
     Dates: start: 20030901, end: 20091001

REACTIONS (2)
  - PSYCHOTIC BEHAVIOUR [None]
  - ANGER [None]
